FAERS Safety Report 9240277 (Version 1)
Quarter: 2013Q1

REPORT INFORMATION
  Report Type: Spontaneous
  Country: US (occurrence: None)
  Receive Date: 20121107
  Receipt Date: 20121107
  Transmission Date: 20140127
  Serious: Yes (Other)
  Sender: FDA-Public Use
  Company Number: AUR-APL-2012-04094

PATIENT
  Sex: 0

DRUGS (1)
  1. VENLAFAXINE (VENLAFAXINE) [Suspect]
     Dosage: (10057097 - DRUG USE FOR UNKNOWN INDICATION)

REACTIONS (1)
  - Hallucination [None]
